FAERS Safety Report 21073977 (Version 9)
Quarter: 2023Q1

REPORT INFORMATION
  Report Type: Spontaneous
  Country: CA (occurrence: CA)
  Receive Date: 20220713
  Receipt Date: 20230317
  Transmission Date: 20230418
  Serious: Yes (Hospitalization)
  Sender: FDA-Public Use
  Company Number: CA-CELLTRION INC.-2022CA010891

PATIENT

DRUGS (7)
  1. INFLECTRA [Suspect]
     Active Substance: INFLIXIMAB-DYYB
     Indication: Colitis ulcerative
     Dosage: 5 MG/KG AT WEEK 0, 2 AND 6 WEEKS, THEN Q 8 WEEKS
     Route: 042
     Dates: start: 20220608
  2. INFLECTRA [Suspect]
     Active Substance: INFLIXIMAB-DYYB
     Dosage: 422 MG (RECEIVED 422 MG) AT WEEK 0, 2 AND 6 WEEKS, THEN Q 8 WEEKS
     Route: 042
     Dates: start: 20220617
  3. INFLECTRA [Suspect]
     Active Substance: INFLIXIMAB-DYYB
     Dosage: 5 MG/KG AT WEEK 0, 2 AND 6 WEEKS, THEN Q 8 WEEKS
     Route: 042
     Dates: start: 20220714
  4. INFLECTRA [Suspect]
     Active Substance: INFLIXIMAB-DYYB
     Dosage: 5 MG/KG AT WEEK 0, 2 AND 6 WEEKS, THEN Q 8 WEEKS
     Route: 042
     Dates: start: 20220907
  5. INFLECTRA [Suspect]
     Active Substance: INFLIXIMAB-DYYB
     Dosage: 400 MG, (Q 4 WEEKS) PATIENT IS SUPPOSED TO RECEIVE 10 MG/KG
     Route: 042
     Dates: start: 20221003
  6. INFLECTRA [Suspect]
     Active Substance: INFLIXIMAB-DYYB
     Dosage: 780 MG (10MG/KG EVERY 4 WEEKS) (ALSO REPORTED)
     Route: 042
     Dates: start: 20221003
  7. INFLECTRA [Suspect]
     Active Substance: INFLIXIMAB-DYYB
     Dosage: 10 MG/KG, (780 MG), EVERY 4 WEEKS
     Route: 042
     Dates: start: 20230222

REACTIONS (15)
  - Illness [Recovering/Resolving]
  - Blood potassium decreased [Unknown]
  - Haemoglobin decreased [Unknown]
  - Asthenia [Unknown]
  - Nasopharyngitis [Recovering/Resolving]
  - Oedema peripheral [Unknown]
  - Decreased appetite [Unknown]
  - Nasal oedema [Unknown]
  - Balance disorder [Unknown]
  - Constipation [Unknown]
  - Abdominal discomfort [Unknown]
  - Stress [Unknown]
  - Off label use [Unknown]
  - Inappropriate schedule of product administration [Unknown]
  - Incorrect dose administered [Unknown]

NARRATIVE: CASE EVENT DATE: 20220101
